FAERS Safety Report 9540536 (Version 2)
Quarter: 2014Q2

REPORT INFORMATION
  Report Type: Spontaneous
  Country: US (occurrence: US)
  Receive Date: 20130920
  Receipt Date: 20140411
  Transmission Date: 20141212
  Serious: Yes (Hospitalization, Other)
  Sender: FDA-Public Use
  Company Number: US-PFIZER INC-2013267418

PATIENT
  Age: 72 Year
  Sex: Male
  Weight: 102 kg

DRUGS (4)
  1. SUTENT [Suspect]
     Indication: RENAL CELL CARCINOMA
     Dosage: 25 MG, CYCLIC (4 WKS ON / 2 WKS OFF, EVERY OTHER DAY)
     Dates: start: 20130723
  2. SUTENT [Suspect]
     Dosage: 25 MG, CYCLIC (TWO WEEKS ON FOLLOWED BY ONE WEEKS OFF)
     Dates: start: 2013
  3. SUTENT [Suspect]
     Dosage: 25 MG, EVERY OTHER DAY
  4. SUTENT [Suspect]
     Dosage: UNK, TWO WEEKS ON FOLLOWED BY TWO WEEKS OFF

REACTIONS (7)
  - Dehydration [Recovered/Resolved]
  - Renal impairment [Recovered/Resolved]
  - Nasopharyngitis [Recovered/Resolved]
  - Pyrexia [Recovered/Resolved]
  - Dysphagia [Recovering/Resolving]
  - Dysgeusia [Recovering/Resolving]
  - Weight decreased [Recovered/Resolved]
